FAERS Safety Report 16863083 (Version 2)
Quarter: 2024Q2

REPORT INFORMATION
  Report Type: Report from Study
  Country: US (occurrence: US)
  Receive Date: 20190927
  Receipt Date: 20240604
  Transmission Date: 20240716
  Serious: No
  Sender: FDA-Public Use
  Company Number: US-KYOWAKIRIN-2019BKK014917

PATIENT

DRUGS (3)
  1. BUROSUMAB [Suspect]
     Active Substance: BUROSUMAB
     Indication: Hereditary hypophosphataemic rickets
     Dosage: 30 MG
     Route: 065
     Dates: start: 20190920
  2. BUROSUMAB [Suspect]
     Active Substance: BUROSUMAB
     Dosage: 40 MG
     Route: 065
     Dates: start: 201904
  3. BUROSUMAB [Suspect]
     Active Substance: BUROSUMAB
     Dosage: 40 UNK, 1X/2 WEEKS
     Route: 058
     Dates: start: 20181205

REACTIONS (2)
  - Wrong dose [Unknown]
  - Product storage error [Unknown]

NARRATIVE: CASE EVENT DATE: 20190920
